FAERS Safety Report 10982865 (Version 1)
Quarter: 2015Q2

REPORT INFORMATION
  Report Type: Spontaneous
  Country: US (occurrence: None)
  Receive Date: 20150402
  Receipt Date: 20150402
  Transmission Date: 20150821
  Serious: No
  Sender: FDA-Public Use
  Company Number: None

PATIENT
  Age: 87 Year
  Sex: Male
  Weight: 70.31 kg

DRUGS (7)
  1. CALCIUM [Concomitant]
     Active Substance: CALCIUM
  2. ASPIRIN. [Concomitant]
     Active Substance: ASPIRIN
  3. CIPROFLOXACIN 250 MG [Suspect]
     Active Substance: CIPROFLOXACIN
     Indication: URINARY TRACT OBSTRUCTION
     Dosage: 2 PILLS, TWICE DAILY, TAKEN BY MOUTH
     Route: 048
     Dates: start: 20150323, end: 20150328
  4. GABAPENTIN. [Concomitant]
     Active Substance: GABAPENTIN
  5. CO-10 [Concomitant]
  6. FLORGEN [Concomitant]
  7. SIMVASTATION [Concomitant]

REACTIONS (1)
  - Adverse drug reaction [None]

NARRATIVE: CASE EVENT DATE: 20150323
